FAERS Safety Report 20489230 (Version 2)
Quarter: 2022Q1

REPORT INFORMATION
  Report Type: Report from Study
  Country: US (occurrence: US)
  Receive Date: 20220218
  Receipt Date: 20220329
  Transmission Date: 20220423
  Serious: Yes (Hospitalization)
  Sender: FDA-Public Use
  Company Number: US-BIOVITRUM-2021US11967

PATIENT
  Age: 0 Year
  Sex: Male

DRUGS (9)
  1. SYNAGIS [Suspect]
     Active Substance: PALIVIZUMAB
     Indication: Antiviral prophylaxis
     Route: 030
  2. SYNAGIS [Suspect]
     Active Substance: PALIVIZUMAB
     Dosage: 100 MG/1 ML
     Route: 030
  3. ZYRTEC [Concomitant]
     Active Substance: CETIRIZINE HYDROCHLORIDE
     Indication: Product used for unknown indication
  4. DIURIL [Concomitant]
     Active Substance: CHLOROTHIAZIDE
  5. GLYCERIN CHILD [Concomitant]
     Indication: Product used for unknown indication
  6. ALBUTEROL [Concomitant]
     Active Substance: ALBUTEROL
     Indication: Product used for unknown indication
  7. PREDNISONE [Concomitant]
     Active Substance: PREDNISONE
     Indication: Product used for unknown indication
  8. GAS RELIEF DROPS [Concomitant]
     Active Substance: DIMETHICONE
  9. POLY-VI-FLOR/IRON [Concomitant]

REACTIONS (6)
  - Rhinovirus infection [Unknown]
  - Lung disorder [Unknown]
  - Coronavirus infection [Unknown]
  - Adenovirus infection [Unknown]
  - Injection site rash [Unknown]
  - Product dose omission issue [Unknown]

NARRATIVE: CASE EVENT DATE: 20220201
